FAERS Safety Report 12708584 (Version 1)
Quarter: 2016Q3

REPORT INFORMATION
  Report Type: Report from Study
  Country: CO (occurrence: CO)
  Receive Date: 20160901
  Receipt Date: 20160901
  Transmission Date: 20161109
  Serious: Yes (Hospitalization)
  Sender: FDA-Public Use
  Company Number: CO-PFIZER INC-2010111191

PATIENT
  Age: 59 Year
  Sex: Female
  Weight: 79 kg

DRUGS (6)
  1. LOVASTATIN. [Concomitant]
     Active Substance: LOVASTATIN
     Indication: DYSLIPIDAEMIA
     Dosage: 40 MG, 1X/DAY
     Route: 048
     Dates: start: 20100215
  2. IBUPROFEN. [Suspect]
     Active Substance: IBUPROFEN
     Indication: ARTHRITIS
     Dosage: UNK
     Route: 048
     Dates: start: 20100210, end: 20130901
  3. LOSARTAN. [Concomitant]
     Active Substance: LOSARTAN
     Indication: HYPERTENSION
     Dosage: 50 MG, 1X/DAY
     Route: 048
     Dates: start: 200907
  4. METFORMIN [Concomitant]
     Active Substance: METFORMIN HYDROCHLORIDE
     Indication: DIABETES MELLITUS
     Dosage: 850 MG, 1X/DAY
     Route: 048
     Dates: start: 20100630
  5. GLIBENCLAMIDE [Concomitant]
     Active Substance: GLYBURIDE
     Indication: DIABETES MELLITUS
     Dosage: 5 MG, 1X/DAY
     Route: 048
     Dates: start: 20100630, end: 20100712
  6. NEXIUM [Concomitant]
     Active Substance: ESOMEPRAZOLE MAGNESIUM
     Indication: PROPHYLAXIS
     Dosage: 20 MG, 1X/DAY
     Route: 048
     Dates: start: 20100210, end: 20100712

REACTIONS (1)
  - Gastritis [Recovered/Resolved]

NARRATIVE: CASE EVENT DATE: 20100712
